FAERS Safety Report 14109988 (Version 1)
Quarter: 2017Q4

REPORT INFORMATION
  Report Type: Spontaneous
  Country: US (occurrence: US)
  Receive Date: 20171020
  Receipt Date: 20171020
  Transmission Date: 20180321
  Serious: Yes (Other)
  Sender: FDA-Public Use
  Company Number: US-TEVA-720382USA

PATIENT
  Sex: Female

DRUGS (1)
  1. SPRINTEC [Suspect]
     Active Substance: ETHINYL ESTRADIOL\NORGESTIMATE
     Indication: OVARIAN CYST
     Route: 065
     Dates: start: 201610, end: 201611

REACTIONS (12)
  - Rash pruritic [Unknown]
  - Abdominal pain lower [Unknown]
  - Urticaria [Unknown]
  - Thrombosis [Unknown]
  - Back pain [Unknown]
  - Hepatic cyst [Not Recovered/Not Resolved]
  - Rash [Not Recovered/Not Resolved]
  - Asthenia [Unknown]
  - Hormone level abnormal [Not Recovered/Not Resolved]
  - Vomiting [Unknown]
  - Product use in unapproved indication [Unknown]
  - Adverse event [Unknown]

NARRATIVE: CASE EVENT DATE: 2016
